FAERS Safety Report 23274456 (Version 1)
Quarter: 2023Q4

REPORT INFORMATION
  Report Type: Other
  Country: US (occurrence: None)
  Receive Date: 20231208
  Receipt Date: 20231208
  Transmission Date: 20240110
  Serious: Yes (Death, Other)
  Sender: FDA-Public Use
  Company Number: US-ROCHE-3469359

PATIENT

DRUGS (6)
  1. RITUXIMAB [Suspect]
     Active Substance: RITUXIMAB
     Indication: Chronic lymphocytic leukaemia refractory
     Route: 065
  2. RITUXIMAB [Suspect]
     Active Substance: RITUXIMAB
     Indication: Lymphocytic lymphoma
  3. LISAFTOCLAX [Suspect]
     Active Substance: LISAFTOCLAX
     Indication: Chronic lymphocytic leukaemia refractory
     Dosage: 400, 600, AND 800 MG ALONE OR COMBINED WITH CONTINUOUS ACALABRUTINIB OR RITUXIMAB FOR 6 CYCLES OF 28
     Route: 048
  4. LISAFTOCLAX [Suspect]
     Active Substance: LISAFTOCLAX
     Indication: Lymphocytic lymphoma
  5. ACALABRUTINIB [Suspect]
     Active Substance: ACALABRUTINIB
     Indication: Chronic lymphocytic leukaemia refractory
     Route: 065
  6. ACALABRUTINIB [Suspect]
     Active Substance: ACALABRUTINIB
     Indication: Lymphocytic lymphoma

REACTIONS (14)
  - COVID-19 [Fatal]
  - Neutropenia [Unknown]
  - Thrombocytopenia [Unknown]
  - Anaemia [Unknown]
  - Cytopenia [Unknown]
  - Diarrhoea [Unknown]
  - Hyperuricaemia [Unknown]
  - Pyrexia [Unknown]
  - Nausea [Unknown]
  - Headache [Unknown]
  - Fatigue [Unknown]
  - Aspartate aminotransferase increased [Unknown]
  - Hyperphosphataemia [Unknown]
  - Blood creatinine increased [Unknown]
